FAERS Safety Report 12656334 (Version 1)
Quarter: 2016Q3

REPORT INFORMATION
  Report Type: Spontaneous
  Country: US (occurrence: US)
  Receive Date: 20160816
  Receipt Date: 20160816
  Transmission Date: 20161109
  Serious: No
  Sender: FDA-Public Use
  Company Number: US-PERRIGO-15US008479

PATIENT
  Age: 71 Year
  Sex: Female
  Weight: 90.7 kg

DRUGS (2)
  1. LORATADINE. [Suspect]
     Active Substance: LORATADINE
     Dosage: 10 MG, BID
     Route: 048
     Dates: start: 20150814
  2. LORATADINE. [Suspect]
     Active Substance: LORATADINE
     Indication: SINUS DISORDER
     Dosage: 10 MG, BID
     Route: 048
     Dates: end: 201507

REACTIONS (3)
  - Off label use [Unknown]
  - Drug effect decreased [Unknown]
  - Inappropriate schedule of drug administration [Unknown]

NARRATIVE: CASE EVENT DATE: 201507
